FAERS Safety Report 8758391 (Version 1)
Quarter: 2012Q4

REPORT INFORMATION
  Report Type: Spontaneous
  Country: US (occurrence: None)
  Receive Date: 20120828
  Receipt Date: 20120828
  Transmission Date: 20130627
  Serious: Yes (Hospitalization)
  Sender: FDA-Public Use
  Company Number: None

PATIENT
  Age: 54 Year
  Sex: Female
  Weight: 90.22 kg

DRUGS (6)
  1. DOXORUBICIN [Suspect]
     Dosage: 120 mg 6 IV bolus
     Route: 040
     Dates: start: 20110617, end: 20110930
  2. LOTREL [Concomitant]
  3. LOVENOX [Concomitant]
  4. PROZAC [Concomitant]
  5. ATIVAN [Concomitant]
  6. CLARITIN [Concomitant]

REACTIONS (7)
  - Left ventricular failure [None]
  - Metabolic acidosis [None]
  - Deep vein thrombosis [None]
  - Urosepsis [None]
  - Escherichia sepsis [None]
  - Bacteraemia [None]
  - Renal failure acute [None]
